FAERS Safety Report 4937311-7 (Version None)
Quarter: 2006Q1

REPORT INFORMATION
  Report Type: 
  Country: None (occurrence: None)
  Receive Date: 20060309
  Receipt Date: 20060217
  Transmission Date: 20060701
  Serious: Yes (Hospitalization)
  Sender: FDA-Public Use
  Company Number: FR-JNJFOC-20060301051

PATIENT
  Age: 60 Year
  Sex: Female

DRUGS (3)
  1. TOPALGIC [Suspect]
     Indication: ARTHRALGIA
     Route: 048
  2. ZONDAR [Interacting]
     Indication: ARTHRALGIA
     Route: 048
  3. PREVISCAN [Interacting]
     Indication: MITRAL VALVE REPLACEMENT
     Route: 048

REACTIONS (3)
  - DRUG INTERACTION [None]
  - ECCHYMOSIS [None]
  - INTERNATIONAL NORMALISED RATIO INCREASED [None]
